FAERS Safety Report 4492408-3 (Version None)
Quarter: 2004Q4

REPORT INFORMATION
  Report Type: 
  Country: None (occurrence: None)
  Receive Date: 20041102
  Receipt Date: 20041102
  Transmission Date: 20050328
  Serious: No
  Sender: FDA-Public Use
  Company Number: None

PATIENT
  Sex: Male
  Weight: 79.8331 kg

DRUGS (1)
  1. MIRTAZAPINE [Suspect]

REACTIONS (2)
  - DRUG WITHDRAWAL SYNDROME [None]
  - PANIC DISORDER [None]
